FAERS Safety Report 6306463-9 (Version None)
Quarter: 2009Q3

REPORT INFORMATION
  Report Type: 
  Country: None (occurrence: None)
  Receive Date: 20090812
  Receipt Date: 20090805
  Transmission Date: 20100115
  Serious: Yes (Hospitalization, Disabling, Other)
  Sender: FDA-Public Use
  Company Number: US-BAXTER-2009BH012574

PATIENT
  Age: 43 Year
  Sex: Female

DRUGS (1)
  1. PROMETHAZINE [Suspect]
     Indication: NAUSEA
     Route: 042

REACTIONS (8)
  - ARTERIAL OCCLUSIVE DISEASE [None]
  - DRUG ADMINISTRATION ERROR [None]
  - ERYTHEMA [None]
  - NECROSIS [None]
  - PAIN [None]
  - PERIPHERAL ISCHAEMIA [None]
  - SKIN DISCOLOURATION [None]
  - VASOSPASM [None]
